FAERS Safety Report 9682546 (Version 1)
Quarter: 2013Q4

REPORT INFORMATION
  Report Type: Spontaneous
  Country: US (occurrence: US)
  Receive Date: 20131112
  Receipt Date: 20131112
  Transmission Date: 20140711
  Serious: Yes (Hospitalization)
  Sender: FDA-Public Use
  Company Number: US-AMGEN-USASP2013079105

PATIENT
  Age: 71 Year
  Sex: Female

DRUGS (1)
  1. ENBREL [Suspect]
     Indication: RHEUMATOID ARTHRITIS
     Dosage: UNK
     Route: 065
     Dates: start: 20000925

REACTIONS (4)
  - Cholelithiasis [Recovered/Resolved]
  - Fall [Recovered/Resolved]
  - Diarrhoea [Recovered/Resolved]
  - Tooth disorder [Not Recovered/Not Resolved]
